FAERS Safety Report 8348967-3 (Version None)
Quarter: 2012Q2

REPORT INFORMATION
  Report Type: 
  Country: None (occurrence: None)
  Receive Date: 20120510
  Receipt Date: 20120430
  Transmission Date: 20120825
  Serious: Yes (Hospitalization)
  Sender: FDA-Public Use
  Company Number: CA-JNJFOC-20120206065

PATIENT
  Sex: Male
  Weight: 109.1 kg

DRUGS (5)
  1. REMICADE [Suspect]
     Indication: CROHN'S DISEASE
     Dosage: ALTERNATIVELY WITH 600MG
     Route: 042
  2. REMICADE [Suspect]
     Route: 042
     Dates: start: 20090409
  3. CYMBALTA [Concomitant]
     Route: 065
  4. METHOTREXATE [Concomitant]
     Route: 065
  5. SEROQUEL [Concomitant]
     Route: 065

REACTIONS (3)
  - ABSCESS [None]
  - FISTULA [None]
  - PNEUMONIA [None]
